FAERS Safety Report 5888601-5 (Version None)
Quarter: 2008Q3

REPORT INFORMATION
  Report Type: 
  Country: None (occurrence: None)
  Receive Date: 20080918
  Receipt Date: 20080910
  Transmission Date: 20090109
  Serious: Yes (Death, Hospitalization)
  Sender: FDA-Public Use
  Company Number: PA-ABBOTT-06P-125-0352088-01

PATIENT
  Sex: Female
  Weight: 41 kg

DRUGS (10)
  1. RITONAVIR SOFT GELATIN CAPSULES [Suspect]
     Indication: HIV INFECTION
     Route: 048
     Dates: start: 20060812, end: 20061124
  2. TMC-125 (BLINDED) [Concomitant]
     Indication: HIV INFECTION
     Route: 048
     Dates: start: 20060812, end: 20061124
  3. TMC114 [Concomitant]
     Indication: HIV INFECTION
     Route: 048
     Dates: start: 20060812, end: 20061124
  4. ZIDOVUDINE [Concomitant]
     Indication: HIV INFECTION
     Dates: start: 20060812, end: 20061125
  5. VIREAD [Concomitant]
     Indication: HIV INFECTION
     Route: 048
     Dates: start: 20060812, end: 20061125
  6. MULTI-VITAMINS [Concomitant]
     Indication: MEDICAL DIET
     Route: 048
     Dates: end: 20061125
  7. LOPERAMIDE HCL [Concomitant]
     Indication: PROPHYLAXIS AGAINST DIARRHOEA
     Route: 048
     Dates: end: 20061125
  8. CEFOTAXIME [Concomitant]
     Indication: MENINGITIS
     Route: 042
     Dates: start: 20060926, end: 20061125
  9. AMPHOTERICIN B [Concomitant]
     Indication: MENINGITIS
     Route: 042
     Dates: start: 20060929, end: 20061125
  10. LAMOTRIGINE [Concomitant]
     Indication: CONVULSION
     Route: 048
     Dates: start: 20060930, end: 20061125

REACTIONS (5)
  - BLOOD GLUCOSE INCREASED [None]
  - CARDIAC ARREST [None]
  - CONVULSION [None]
  - KETOACIDOSIS [None]
  - SHOCK [None]
